FAERS Safety Report 8356038 (Version 3)
Quarter: 2013Q1

REPORT INFORMATION
  Report Type: Spontaneous
  Country: US (occurrence: US)
  Receive Date: 20120126
  Receipt Date: 20130125
  Transmission Date: 20140127
  Serious: Yes (Other)
  Sender: FDA-Public Use
  Company Number: US-ELI_LILLY_AND_COMPANY-US201201006617

PATIENT
  Age: 65 Year
  Sex: Male

DRUGS (11)
  1. BYETTA [Suspect]
     Dosage: 5 UG, BID
     Dates: start: 200906, end: 200908
  2. BYETTA [Suspect]
     Dosage: 10 UG, UNK
  3. ACTOS [Concomitant]
     Dosage: 30 MG, UNK
  4. GLYBURIDE [Concomitant]
     Dosage: 1.5 DF, EACH MORNING
  5. LASIX [Concomitant]
     Dosage: 40 DF, PRN
  6. ASPIRIN [Concomitant]
     Dosage: 162.5 DF, QD
  7. MAXZIDE [Concomitant]
  8. GLUCOPHAGE [Concomitant]
     Dosage: 2000 MG, QD
  9. VIAGRA [Concomitant]
  10. FLOMAX [Concomitant]
     Dosage: 0.4 DF, UNK
  11. SIMVASTATIN [Concomitant]
     Dosage: 80 MG, UNK

REACTIONS (1)
  - Pancreatic carcinoma [Unknown]
